FAERS Safety Report 8741115 (Version 3)
Quarter: 2015Q1

REPORT INFORMATION
  Report Type: Spontaneous
  Country: US (occurrence: US)
  Receive Date: 20120824
  Receipt Date: 20150123
  Transmission Date: 20150721
  Serious: Yes (Other)
  Sender: FDA-Public Use
  Company Number: US-ASTRAZENECA-2011SE75925

PATIENT
  Age: 65 Year
  Sex: Female
  Weight: 68 kg

DRUGS (18)
  1. DIPROLENE [Concomitant]
     Active Substance: BETAMETHASONE DIPROPIONATE
  2. PLAVIX [Concomitant]
     Active Substance: CLOPIDOGREL BISULFATE
     Route: 048
  3. CARDIZEM [Concomitant]
     Active Substance: DILTIAZEM HYDROCHLORIDE
     Route: 048
  4. CYMBALTA [Concomitant]
     Active Substance: DULOXETINE HYDROCHLORIDE
     Route: 048
  5. WELLBUTRIN [Concomitant]
     Active Substance: BUPROPION HYDROCHLORIDE
     Route: 048
  6. LISINOPRIL. [Suspect]
     Active Substance: LISINOPRIL
     Indication: BLOOD PRESSURE ABNORMAL
     Route: 048
  7. SYMBICORT [Suspect]
     Active Substance: BUDESONIDE\FORMOTEROL FUMARATE DIHYDRATE
     Indication: CHRONIC OBSTRUCTIVE PULMONARY DISEASE
     Dosage: 80/4.5 , 1 PUFF , TWO TIMES A DAY
     Route: 055
     Dates: start: 20110803
  8. TYLENOL [Concomitant]
     Active Substance: ACETAMINOPHEN
     Indication: ARTHRITIS
     Route: 048
  9. GABAPENTIN. [Concomitant]
     Active Substance: GABAPENTIN
     Route: 048
  10. SYMBICORT [Suspect]
     Active Substance: BUDESONIDE\FORMOTEROL FUMARATE DIHYDRATE
     Indication: CHRONIC OBSTRUCTIVE PULMONARY DISEASE
     Dosage: 80/4.5 MCG 1 PUFF A DAY
     Route: 055
  11. ARTEZLA [Concomitant]
     Dates: start: 20141219
  12. OTHER CREAMS [Concomitant]
  13. SYMBICORT [Suspect]
     Active Substance: BUDESONIDE\FORMOTEROL FUMARATE DIHYDRATE
     Indication: CHRONIC OBSTRUCTIVE PULMONARY DISEASE
     Dosage: 80/4.5 MCG 2 PUFFS A DAY
     Route: 055
  14. XANAX [Concomitant]
     Active Substance: ALPRAZOLAM
     Route: 048
  15. CHOLECALCIFEROL [Concomitant]
     Active Substance: CHOLECALCIFEROL
     Dosage: 5000 BIWK
     Route: 048
  16. COMADONE [Concomitant]
     Indication: TREMOR
  17. FISH OIL [Concomitant]
     Active Substance: FISH OIL
  18. LOSARTAN [Concomitant]
     Active Substance: LOSARTAN
     Route: 048

REACTIONS (14)
  - Weight decreased [Unknown]
  - Memory impairment [Unknown]
  - Intentional product use issue [Unknown]
  - Intervertebral disc degeneration [Unknown]
  - Psoriatic arthropathy [Unknown]
  - Respiratory disorder [Unknown]
  - Drug hypersensitivity [Unknown]
  - Headache [Unknown]
  - Cough [Unknown]
  - Psoriasis [Unknown]
  - Diarrhoea [Unknown]
  - Osteomyelitis [Unknown]
  - Drug dose omission [Unknown]
  - Off label use [Unknown]

NARRATIVE: CASE EVENT DATE: 201411
